FAERS Safety Report 7536632-1 (Version None)
Quarter: 2011Q2

REPORT INFORMATION
  Report Type: 
  Country: None (occurrence: None)
  Receive Date: 20110602
  Receipt Date: 20110519
  Transmission Date: 20111010
  Serious: No
  Sender: FDA-Public Use
  Company Number: B0720236A

PATIENT
  Age: 59 Year
  Sex: Male

DRUGS (4)
  1. ROSIGLITAZONE MALEATE [Suspect]
     Dosage: 8 MG
  2. ROSIGLITAZONE MALEATE [Suspect]
     Indication: TYPE 2 DIABETES MELLITUS
     Dosage: 4 MG
  3. FENOFIBRATE [Suspect]
     Dosage: 160 MG/ PER DAY
  4. METFORMIN HCL [Concomitant]

REACTIONS (2)
  - DRUG INTERACTION [None]
  - HIGH DENSITY LIPOPROTEIN DECREASED [None]
